FAERS Safety Report 15641389 (Version 4)
Quarter: 2018Q4

REPORT INFORMATION
  Report Type: Spontaneous
  Country: UA (occurrence: UA)
  Receive Date: 20181120
  Receipt Date: 20181226
  Transmission Date: 20190205
  Serious: Yes (Hospitalization, Other)
  Sender: FDA-Public Use
  Company Number: UA-INCYTE CORPORATION-2018IN011656

PATIENT

DRUGS (1)
  1. JAKAVI [Suspect]
     Active Substance: RUXOLITINIB
     Indication: PRIMARY MYELOFIBROSIS
     Dosage: 15 MG, QD (PER OS)
     Route: 048
     Dates: start: 201802

REACTIONS (39)
  - Ataxia [Not Recovered/Not Resolved]
  - Aspartate aminotransferase increased [Unknown]
  - Bilirubin conjugated increased [Unknown]
  - Dysaesthesia [Unknown]
  - Hepatomegaly [Unknown]
  - Lymphocyte count abnormal [Unknown]
  - Monocyte count abnormal [Unknown]
  - Basophil count abnormal [Unknown]
  - Hypoaesthesia [Unknown]
  - Red blood cell count abnormal [Unknown]
  - Tremor [Unknown]
  - Muscular weakness [Unknown]
  - Myelocyte count increased [Unknown]
  - Pain [Unknown]
  - Platelet count abnormal [Unknown]
  - White blood cell count abnormal [Unknown]
  - Oedema peripheral [Unknown]
  - Haemoglobin abnormal [Unknown]
  - Muscle atrophy [Unknown]
  - Red blood cell sedimentation rate abnormal [Unknown]
  - Eosinophil count abnormal [Unknown]
  - Heart sounds abnormal [Unknown]
  - Neutrophil count increased [Unknown]
  - Blood bilirubin increased [Unknown]
  - Protein total increased [Unknown]
  - Radiation neuropathy [Not Recovered/Not Resolved]
  - Areflexia [Unknown]
  - Blood glucose increased [Unknown]
  - Gait disturbance [Unknown]
  - Pallor [Unknown]
  - Splenomegaly [Not Recovered/Not Resolved]
  - Dysuria [Unknown]
  - Fatigue [Unknown]
  - Blood lactate dehydrogenase increased [Unknown]
  - Paraesthesia [Unknown]
  - General physical health deterioration [Unknown]
  - Paraparesis [Not Recovered/Not Resolved]
  - Blood alkaline phosphatase increased [Unknown]
  - Metamyelocyte count increased [Unknown]

NARRATIVE: CASE EVENT DATE: 20181024
